FAERS Safety Report 4592750-1 (Version None)
Quarter: 2005Q1

REPORT INFORMATION
  Report Type: 
  Country: None (occurrence: None)
  Receive Date: 20050222
  Receipt Date: 20041228
  Transmission Date: 20050727
  Serious: Yes (Hospitalization, Other)
  Sender: FDA-Public Use
  Company Number: 2005024726

PATIENT
  Age: 47 Year
  Sex: Male

DRUGS (7)
  1. CELEBREX [Suspect]
     Indication: RHEUMATOID ARTHRITIS
     Dosage: 400 MG (400 MG, 1 IN 1 D), ORAL
     Route: 048
     Dates: start: 19990101
  2. NAPROXEN [Suspect]
     Indication: ILL-DEFINED DISORDER
  3. ROFECOXIC (ROFECOXIB) [Suspect]
     Indication: ILL-DEFINED DISORDER
  4. FOLIC ACID [Concomitant]
  5. AMLODIPINE [Concomitant]
  6. HYZAAR [Concomitant]
  7. METHOTREXATE [Concomitant]

REACTIONS (8)
  - ANEURYSM [None]
  - BREAST PAIN [None]
  - BREAST TENDERNESS [None]
  - CHEST PAIN [None]
  - DRUG INEFFECTIVE [None]
  - PARAESTHESIA [None]
  - RHEUMATOID ARTHRITIS [None]
  - VOMITING [None]
